FAERS Safety Report 9731258 (Version 2)
Quarter: 2013Q4

REPORT INFORMATION
  Report Type: Report from Study
  Country: DE (occurrence: DE)
  Receive Date: 20131205
  Receipt Date: 20131205
  Transmission Date: 20140711
  Serious: Yes (Death)
  Sender: FDA-Public Use
  Company Number: DE-BEH-2013038249

PATIENT
  Age: 66 Year
  Sex: Male
  Weight: 78.5 kg

DRUGS (5)
  1. PRIVIGEN [Suspect]
     Dosage: INFUSION RATE: MIN:1.66; MAX:1.66
     Route: 042
     Dates: start: 20130214, end: 20130214
  2. PRIVIGEN [Suspect]
     Dosage: INFUSION RATE: MIN:1.66; MAX:1.66
     Route: 042
     Dates: start: 20130311, end: 20130311
  3. PRIVIGEN [Suspect]
     Indication: CHRONIC LYMPHOCYTIC LEUKAEMIA
     Dosage: INFUSION RATE: MIN:1.66; MAX:1.66
     Route: 042
     Dates: start: 20130408, end: 20130408
  4. METOPROLOL [Concomitant]
  5. RAMIPRIL [Concomitant]

REACTIONS (1)
  - Chronic lymphocytic leukaemia [Fatal]
